FAERS Safety Report 16873262 (Version 5)
Quarter: 2022Q1

REPORT INFORMATION
  Report Type: Spontaneous
  Country: US (occurrence: US)
  Receive Date: 20191001
  Receipt Date: 20220110
  Transmission Date: 20220424
  Serious: No
  Sender: FDA-Public Use
  Company Number: US-PFIZER INC-2019301396

PATIENT
  Age: 15 Year
  Sex: Male

DRUGS (3)
  1. XELJANZ [Suspect]
     Active Substance: TOFACITINIB CITRATE
     Indication: Dermatitis atopic
     Dosage: 5 MG, 2X/DAY
     Route: 048
  2. XELJANZ [Suspect]
     Active Substance: TOFACITINIB CITRATE
     Indication: Alopecia areata
     Dosage: 10 MG, 2X/DAY
     Route: 048
     Dates: start: 20211011
  3. XELJANZ [Suspect]
     Active Substance: TOFACITINIB CITRATE
     Indication: Rheumatoid arthritis

REACTIONS (2)
  - Condition aggravated [Unknown]
  - Off label use [Unknown]
